FAERS Safety Report 17902413 (Version 3)
Quarter: 2021Q2

REPORT INFORMATION
  Report Type: Report from Study
  Country: None (occurrence: US)
  Receive Date: 20200617
  Receipt Date: 20210417
  Transmission Date: 20210717
  Serious: Yes (Hospitalization, Other)
  Sender: FDA-Public Use
  Company Number: US-ABBVIE-20K-163-3257593-00

PATIENT
  Age: 72 Year
  Sex: Male
  Weight: 72.64 kg

DRUGS (5)
  1. VENCLEXTA [Suspect]
     Active Substance: VENETOCLAX
     Route: 048
  2. ELIQUIS [Concomitant]
     Active Substance: APIXABAN
     Indication: PRODUCT USED FOR UNKNOWN INDICATION
  3. VENCLEXTA [Suspect]
     Active Substance: VENETOCLAX
     Route: 048
  4. VENCLEXTA [Suspect]
     Active Substance: VENETOCLAX
     Route: 048
  5. VENCLEXTA [Suspect]
     Active Substance: VENETOCLAX
     Indication: PLASMA CELL MYELOMA
     Dosage: TOOK 2 TABLETS BY MOUTH EVERY DAY
     Route: 048
     Dates: start: 2019

REACTIONS (5)
  - Influenza [Recovered/Resolved]
  - Hypoacusis [Unknown]
  - Cataract [Unknown]
  - Off label use [Unknown]
  - Mobility decreased [Unknown]

NARRATIVE: CASE EVENT DATE: 202002
